FAERS Safety Report 24403184 (Version 1)
Quarter: 2024Q4

REPORT INFORMATION
  Report Type: Report from Study
  Country: AU (occurrence: AU)
  Receive Date: 20241007
  Receipt Date: 20241007
  Transmission Date: 20250115
  Serious: No
  Sender: ROCHE
  Company Number: AU-ROCHE-3445622

PATIENT
  Age: 83 Year
  Sex: Female

DRUGS (3)
  1. OBINUTUZUMAB [Suspect]
     Active Substance: OBINUTUZUMAB
     Indication: Chronic lymphocytic leukaemia
     Dosage: SUSPENDED AFTER SEVEN DOSES
     Route: 042
     Dates: start: 20220117
  2. VENETOCLAX [Concomitant]
     Active Substance: VENETOCLAX
     Indication: Chronic lymphocytic leukaemia
     Dates: start: 20220207
  3. VENETOCLAX [Concomitant]
     Active Substance: VENETOCLAX
     Dosage: 5 CYCLES

REACTIONS (1)
  - Thrombocytopenia [Recovering/Resolving]
